FAERS Safety Report 18324625 (Version 1)
Quarter: 2020Q3

REPORT INFORMATION
  Report Type: Spontaneous
  Country: US (occurrence: US)
  Receive Date: 20200929
  Receipt Date: 20200929
  Transmission Date: 20201103
  Serious: Yes (Death)
  Sender: FDA-Public Use
  Company Number: US-CURIUM-200500292

PATIENT
  Age: 72 Year
  Sex: Male

DRUGS (3)
  1. THALLOUS CHLORIDE TL 201 [Suspect]
     Active Substance: THALLOUS CHLORIDE TL-201
     Indication: SCAN MYOCARDIAL PERFUSION
     Route: 042
     Dates: start: 20051018, end: 20051018
  2. CARDIOLITE [Concomitant]
     Active Substance: TECHNETIUM TC-99M SESTAMIBI
     Indication: CARDIAC STRESS TEST
     Route: 042
     Dates: start: 20051018, end: 20051018
  3. ADENOSCAN [Concomitant]
     Active Substance: ADENOSINE
     Indication: CARDIAC STRESS TEST
     Route: 042
     Dates: start: 20051018, end: 20051018

REACTIONS (1)
  - Respiratory arrest [Fatal]

NARRATIVE: CASE EVENT DATE: 20051018
